FAERS Safety Report 13075517 (Version 3)
Quarter: 2017Q2

REPORT INFORMATION
  Report Type: Spontaneous
  Country: US (occurrence: US)
  Receive Date: 20161230
  Receipt Date: 20170413
  Transmission Date: 20170830
  Serious: Yes (Other)
  Sender: FDA-Public Use
  Company Number: PHEH2016US034027

PATIENT
  Sex: Male

DRUGS (2)
  1. JADENU [Suspect]
     Active Substance: DEFERASIROX
     Dosage: 1080 MG, QD
     Route: 048
     Dates: start: 20160329
  2. JADENU [Suspect]
     Active Substance: DEFERASIROX
     Indication: MYELODYSPLASTIC SYNDROME
     Dosage: 1080 MG, QD
     Route: 048
     Dates: start: 20160328

REACTIONS (4)
  - Gastrointestinal haemorrhage [Recovering/Resolving]
  - Dyspepsia [Recovering/Resolving]
  - Colitis [Recovering/Resolving]
  - Gastric disorder [Unknown]
